FAERS Safety Report 11250192 (Version 1)
Quarter: 2015Q3

REPORT INFORMATION
  Report Type: Spontaneous
  Country: US (occurrence: US)
  Receive Date: 20150708
  Receipt Date: 20150708
  Transmission Date: 20151125
  Serious: Yes (Other)
  Sender: FDA-Public Use
  Company Number: US-ELI_LILLY_AND_COMPANY-US200708007080

PATIENT
  Sex: Female

DRUGS (2)
  1. ANTIBIOTICS [Concomitant]
     Active Substance: UNSPECIFIED INGREDIENT
  2. XIGRIS [Suspect]
     Active Substance: DROTRECOGIN ALFA (ACTIVATED)
     Indication: UROSEPSIS
     Dosage: UNK, UNK
     Route: 042
     Dates: start: 200708, end: 200708

REACTIONS (4)
  - Cerebellar haemorrhage [Recovering/Resolving]
  - Platelet count decreased [Recovering/Resolving]
  - Haemoptysis [Unknown]
  - Pulmonary mass [Recovering/Resolving]

NARRATIVE: CASE EVENT DATE: 200708
